FAERS Safety Report 7634319-8 (Version None)
Quarter: 2011Q3

REPORT INFORMATION
  Report Type: 
  Country: None (occurrence: None)
  Receive Date: 20110725
  Receipt Date: 20110721
  Transmission Date: 20111222
  Serious: Yes (Other)
  Sender: FDA-Public Use
  Company Number: US-PFIZER INC-2010088777

PATIENT
  Sex: Female
  Weight: 86.168 kg

DRUGS (8)
  1. CHANTIX [Suspect]
     Dosage: 0.5 MG, 1X/DAY
     Route: 048
     Dates: start: 20100601, end: 20101101
  2. CHANTIX [Suspect]
     Indication: SMOKING CESSATION THERAPY
     Dosage: 0.5 MG, 1X/DAY
     Route: 048
     Dates: start: 20100601, end: 20100101
  3. INDERAL [Concomitant]
     Indication: MITRAL VALVE PROLAPSE
     Dosage: 0.5 MG, UNK
  4. CHANTIX [Suspect]
     Dosage: 1 MG, 2X/DAY
     Route: 048
     Dates: start: 20100101, end: 20100101
  5. LUNESTA [Concomitant]
     Indication: SLEEP DISORDER
     Dosage: UNK
  6. CHANTIX [Suspect]
     Dosage: UNK
     Route: 048
     Dates: start: 20100601
  7. CHANTIX [Suspect]
     Dosage: 0.5MG AM, 1MG QHS
     Route: 048
     Dates: start: 20100101, end: 20100101
  8. ULTRAM [Concomitant]
     Dosage: UNK

REACTIONS (2)
  - DEPRESSED MOOD [None]
  - WEIGHT DECREASED [None]
